FAERS Safety Report 8498005-7 (Version None)
Quarter: 2012Q3

REPORT INFORMATION
  Report Type: 
  Country: None (occurrence: None)
  Receive Date: 20120709
  Receipt Date: 20120618
  Transmission Date: 20120928
  Serious: No
  Sender: FDA-Public Use
  Company Number: US-AMGEN-USASP2012037877

PATIENT
  Age: 57 Year
  Sex: Female

DRUGS (12)
  1. NORTRIPTYLINE HCL [Concomitant]
     Indication: MIGRAINE
     Dosage: 50 MG 1 IN 1 D
  2. ENBREL [Suspect]
     Indication: PRODUCT USED FOR UNKNOWN INDICATION
     Dosage: UNK
  3. VICODIN [Concomitant]
     Indication: PAIN
  4. VENLAFAXINE HYDROCHOLRIDE [Concomitant]
     Indication: DEPRESSION
     Dosage: 2 PER DAY IN MORNING
  5. TOPIRAMATE [Concomitant]
     Indication: MIGRAINE
     Dosage: 150 MG, AT BED TIME
  6. HUMIRA [Concomitant]
     Indication: RHEUMATOID ARTHRITIS
     Dosage: 40 MG/0.8ML, UNK
     Dates: start: 20120425
  7. MELOXICAM [Concomitant]
     Indication: INFLAMMATION
     Dosage: 7.5 MG 2 TABS DAILY
  8. HYDROCHLOROTHIAZIDE [Concomitant]
     Indication: BLOOD PRESSURE INCREASED
     Dosage: 1 TABLATE DAILY
  9. VENLAFAXINE [Concomitant]
     Dosage: 75 MG, 2 TABS DAILY
  10. VICODIN [Concomitant]
     Indication: MIGRAINE
     Dosage: 5/500 HALF TAB AS NEEDED
  11. LEVOTHYROXINE SODIUM STAT RX [Concomitant]
     Indication: HYPOTHYROIDISM
     Dosage: 0.125 MG, QD
  12. BACLOFEN [Concomitant]
     Indication: MIGRAINE
     Dosage: 10 MG 1/2 TAB AS NEEDED

REACTIONS (3)
  - PAIN [None]
  - RHEUMATOID ARTHRITIS [None]
  - INJECTION SITE PAIN [None]
